FAERS Safety Report 5507643-2 (Version None)
Quarter: 2007Q4

REPORT INFORMATION
  Report Type: 
  Country: None (occurrence: None)
  Receive Date: 20071105
  Receipt Date: 20071105
  Transmission Date: 20080405
  Serious: No
  Sender: FDA-Public Use
  Company Number: None

PATIENT
  Age: 54 Year
  Sex: Male
  Weight: 71.1 kg

DRUGS (1)
  1. PHENYTOIN [Suspect]
     Indication: CONVULSION
     Dosage: 200 MG DAILY PO
     Route: 048

REACTIONS (6)
  - CONVULSION [None]
  - EYE SWELLING [None]
  - HYPERSENSITIVITY [None]
  - PYREXIA [None]
  - RASH [None]
  - RASH PRURITIC [None]
